FAERS Safety Report 25678905 (Version 2)
Quarter: 2025Q3

REPORT INFORMATION
  Report Type: Spontaneous
  Country: US (occurrence: US)
  Receive Date: 20250814
  Receipt Date: 20250825
  Transmission Date: 20251021
  Serious: No
  Sender: GILEAD
  Company Number: US-GILEAD-2025-0723746

PATIENT
  Sex: Female

DRUGS (2)
  1. AMBRISENTAN [Suspect]
     Active Substance: AMBRISENTAN
     Indication: Product used for unknown indication
     Route: 065
  2. TADALAFIL [Concomitant]
     Active Substance: TADALAFIL
     Dosage: 40 MG, QD

REACTIONS (1)
  - Urticaria [Unknown]
